FAERS Safety Report 8163685-2 (Version None)
Quarter: 2012Q1

REPORT INFORMATION
  Report Type: 
  Country: None (occurrence: None)
  Receive Date: 20120224
  Receipt Date: 20120221
  Transmission Date: 20120608
  Serious: Yes (Disabling)
  Sender: FDA-Public Use
  Company Number: CA-B.I. PHARMACEUTICALS,INC./RIDGEFIELD-2012-CN-00405CN

PATIENT
  Age: 73 Year
  Sex: Female

DRUGS (9)
  1. SPIRIVA [Suspect]
     Route: 055
  2. METHOTREXATE [Concomitant]
     Route: 048
  3. QUININE SULFATE [Concomitant]
     Route: 048
  4. OMEPRAZOLE [Concomitant]
     Route: 048
  5. ADVAIR DISKUS 100/50 [Suspect]
     Dosage: 500 RT
     Route: 055
  6. MICARDIS [Concomitant]
     Route: 048
  7. NOVO-METHACIN [Concomitant]
     Route: 048
  8. FOLIC ACID [Concomitant]
     Route: 048
  9. ACTONEL [Concomitant]
     Route: 048

REACTIONS (2)
  - ANOSMIA [None]
  - AGEUSIA [None]
